FAERS Safety Report 5531049-3 (Version None)
Quarter: 2007Q4

REPORT INFORMATION
  Report Type: 
  Country: None (occurrence: None)
  Receive Date: 20071130
  Receipt Date: 20071120
  Transmission Date: 20080405
  Serious: Yes (Life-Threatening)
  Sender: FDA-Public Use
  Company Number: FR-PFIZER INC-2007097900

PATIENT
  Sex: Female

DRUGS (3)
  1. MEDROL [Suspect]
     Dosage: DAILY DOSE:64MG
     Route: 048
  2. MYCOPHENOLATE MOFETIL [Suspect]
     Route: 048
  3. PYRIDOSTIGMINE BROMIDE [Concomitant]
     Dates: start: 20010101, end: 20070301

REACTIONS (3)
  - BRAIN ABSCESS [None]
  - IMMUNODEFICIENCY [None]
  - NOCARDIOSIS [None]
